FAERS Safety Report 5073395-6 (Version None)
Quarter: 2006Q3

REPORT INFORMATION
  Report Type: 
  Country: None (occurrence: None)
  Receive Date: 20060717
  Receipt Date: 20060308
  Transmission Date: 20061208
  Serious: No
  Sender: FDA-Public Use
  Company Number: 2006000571

PATIENT
  Sex: Female

DRUGS (2)
  1. TARCEVA [Suspect]
     Indication: NON-SMALL CELL LUNG CANCER
     Dosage: 150 MG  (QD), ORAL
     Route: 048
  2. LIPITOR [Concomitant]

REACTIONS (3)
  - DRUG INTERACTION [None]
  - FRACTURE [None]
  - MYALGIA [None]
